FAERS Safety Report 16884078 (Version 1)
Quarter: 2019Q4

REPORT INFORMATION
  Report Type: Spontaneous
  Country: US (occurrence: US)
  Receive Date: 20191004
  Receipt Date: 20191004
  Transmission Date: 20200122
  Serious: No
  Sender: FDA-Public Use
  Company Number: US-TEVA-2019-US-1118019

PATIENT

DRUGS (1)
  1. ESZOPICLONE 3MG [Suspect]
     Active Substance: ESZOPICLONE
     Route: 065

REACTIONS (1)
  - Therapeutic product effect decreased [Unknown]
